FAERS Safety Report 4826085-6 (Version None)
Quarter: 2005Q4

REPORT INFORMATION
  Report Type: 
  Country: None (occurrence: None)
  Receive Date: 20051014
  Receipt Date: 20050707
  Transmission Date: 20060501
  Serious: No
  Sender: FDA-Public Use
  Company Number: 2005SP001794

PATIENT
  Age: 57 Year
  Sex: Female
  Weight: 104.3273 kg

DRUGS (6)
  1. LUNESTA [Suspect]
     Indication: INSOMNIA
     Dosage: 2 MG HS ORAL
     Route: 048
     Dates: start: 20050701, end: 20050702
  2. ULTRAM [Concomitant]
  3. NEURONTIN [Concomitant]
  4. CELEBREX [Concomitant]
  5. ACTOS [Concomitant]
  6. NEXIUM [Concomitant]

REACTIONS (4)
  - AGGRESSION [None]
  - AGITATION [None]
  - DRUG INEFFECTIVE [None]
  - INSOMNIA [None]
